FAERS Safety Report 6987590-X (Version None)
Quarter: 2010Q3

REPORT INFORMATION
  Report Type: 
  Country: None (occurrence: None)
  Receive Date: 20100916
  Receipt Date: 20100910
  Transmission Date: 20110219
  Serious: Yes (Hospitalization)
  Sender: FDA-Public Use
  Company Number: FR-AMGEN-KDC435605

PATIENT
  Sex: Female

DRUGS (2)
  1. VECTIBIX [Suspect]
     Route: 042
     Dates: start: 20100505
  2. TAXOTERE [Suspect]
     Route: 042
     Dates: start: 20100728

REACTIONS (3)
  - FEBRILE BONE MARROW APLASIA [None]
  - FUNGAL SKIN INFECTION [None]
  - MUCOSAL INFLAMMATION [None]
